FAERS Safety Report 6697290-1 (Version None)
Quarter: 2010Q2

REPORT INFORMATION
  Report Type: 
  Country: None (occurrence: None)
  Receive Date: 20100426
  Receipt Date: 20100416
  Transmission Date: 20101027
  Serious: No
  Sender: FDA-Public Use
  Company Number: US-BAYER-201018606NA

PATIENT
  Age: 59 Year
  Sex: Male

DRUGS (5)
  1. CIPRO [Suspect]
     Indication: ORCHITIS
     Dosage: UNIT DOSE: 500 MG
     Route: 048
     Dates: start: 20100319, end: 20100402
  2. ALTACE [Concomitant]
     Indication: HYPERTENSION
     Route: 065
  3. METFORMIN HCL [Concomitant]
     Indication: DIABETES MELLITUS
     Route: 065
  4. VYTORIN [Concomitant]
     Indication: BLOOD CHOLESTEROL INCREASED
     Route: 065
     Dates: start: 20090101
  5. METHYLPREDNISOLONE [Concomitant]
     Dates: start: 20100401, end: 20100415

REACTIONS (8)
  - ASTHENIA [None]
  - BACK PAIN [None]
  - BLOOD PRESSURE DIASTOLIC DECREASED [None]
  - DYSPNOEA [None]
  - OCULAR HYPERAEMIA [None]
  - PAIN IN EXTREMITY [None]
  - PYREXIA [None]
  - TACHYCARDIA [None]
